FAERS Safety Report 17777888 (Version 2)
Quarter: 2020Q2

REPORT INFORMATION
  Report Type: Spontaneous
  Country: NL (occurrence: NL)
  Receive Date: 20200513
  Receipt Date: 20200518
  Transmission Date: 20200714
  Serious: Yes (Life-Threatening, Hospitalization)
  Sender: FDA-Public Use
  Company Number: NL-PFIZER INC-2020187989

PATIENT
  Age: 57 Year
  Sex: Male

DRUGS (5)
  1. VASOPRESSIN. [Suspect]
     Active Substance: VASOPRESSIN
     Indication: VASOPRESSIVE THERAPY
     Dosage: 4 IU PER HOUR
  2. DOBUTAMINE HCL [Suspect]
     Active Substance: DOBUTAMINE HYDROCHLORIDE
     Indication: HYPOTENSION
     Dosage: 7.8 UG/KG PER MINUTE
  3. MILRINONE [Suspect]
     Active Substance: MILRINONE
     Indication: HYPOTENSION
     Dosage: 0.31 UG/KG PER MINUTE
  4. NOREPINEPHRINE. [Suspect]
     Active Substance: NOREPINEPHRINE
     Indication: VASOPRESSIVE THERAPY
     Dosage: 0.67 UG/KG PER MINUTE
  5. NITRIC OXIDE. [Suspect]
     Active Substance: NITRIC OXIDE
     Dosage: UNK
     Route: 055

REACTIONS (1)
  - Vasoplegia syndrome [Recovered/Resolved]
